FAERS Safety Report 8547965-4 (Version None)
Quarter: 2012Q3

REPORT INFORMATION
  Report Type: 
  Country: None (occurrence: None)
  Receive Date: 20120729
  Receipt Date: 20120726
  Transmission Date: 20120928
  Serious: No
  Sender: FDA-Public Use
  Company Number: US-009507513-1207USA010865

PATIENT

DRUGS (3)
  1. AMLODIPINE [Concomitant]
     Dosage: 2.5 MG, BID
  2. AZASITE [Suspect]
     Dosage: UNK
     Route: 047
     Dates: start: 20120620
  3. DONEPEZIL HCL [Concomitant]
     Dosage: 10 MG, QD

REACTIONS (2)
  - EYE IRRITATION [None]
  - PRODUCT QUALITY ISSUE [None]
